FAERS Safety Report 19232998 (Version 1)
Quarter: 2021Q2

REPORT INFORMATION
  Report Type: Spontaneous
  Country: US (occurrence: US)
  Receive Date: 20210507
  Receipt Date: 20210507
  Transmission Date: 20210717
  Serious: Yes (Hospitalization)
  Sender: FDA-Public Use
  Company Number: US-JNJFOC-20210500473

PATIENT
  Age: 21 Year
  Sex: Female

DRUGS (3)
  1. JANSSEN COVID?19 VACCINE [Suspect]
     Active Substance: AD26.COV2.S
     Indication: IMMUNISATION
     Route: 065
     Dates: start: 20210325, end: 20210325
  2. PEPCID [Concomitant]
     Active Substance: FAMOTIDINE
     Indication: PRODUCT USED FOR UNKNOWN INDICATION
  3. XARELTO [Suspect]
     Active Substance: RIVAROXABAN
     Indication: EMBOLISM
     Route: 065

REACTIONS (11)
  - Leukocytosis [Recovered/Resolved]
  - Oropharyngeal pain [Recovered/Resolved]
  - Computerised tomogram thorax normal [Recovered/Resolved]
  - Pyrexia [Recovered/Resolved]
  - Product dose omission issue [Unknown]
  - Anticoagulant therapy [Recovered/Resolved]
  - Angiogram pulmonary abnormal [Recovered/Resolved]
  - Ultrasound Doppler abnormal [Recovered/Resolved]
  - Pharyngitis [Recovered/Resolved]
  - Pelvic venous thrombosis [Recovered/Resolved]
  - Back pain [Recovered/Resolved]

NARRATIVE: CASE EVENT DATE: 2021
